FAERS Safety Report 7517881-5 (Version None)
Quarter: 2011Q2

REPORT INFORMATION
  Report Type: 
  Country: None (occurrence: None)
  Receive Date: 20110602
  Receipt Date: 20110119
  Transmission Date: 20111010
  Serious: Yes (Other)
  Sender: FDA-Public Use
  Company Number: US-BAYER-201038054NA

PATIENT
  Age: 25 Year
  Sex: Female
  Weight: 102 kg

DRUGS (14)
  1. NAPROXEN SODIUM [Concomitant]
     Dosage: 550 MG, UNK
     Dates: start: 20070820
  2. SINGULAIR [Concomitant]
     Indication: ASTHMA
     Dosage: 10 UNK, UNK
     Route: 048
     Dates: start: 20050101
  3. YASMIN [Suspect]
     Indication: PREMENSTRUAL SYNDROME
     Dosage: UNK
     Dates: start: 20060101, end: 20090101
  4. COMBIVENT [Concomitant]
     Indication: ASTHMA
     Dosage: UNK
     Dates: start: 20050101
  5. NAPROXEN SODIUM [Concomitant]
     Indication: INFLAMMATION
     Dosage: 550 MG, UNK
     Route: 048
     Dates: start: 20060812
  6. ADVAIR DISKUS 100/50 [Concomitant]
     Indication: ASTHMA
     Dosage: UNK
     Dates: start: 20050101
  7. NAPROXEN SODIUM [Concomitant]
     Dosage: 550 MG, UNK
     Dates: start: 20070227
  8. DROSPIRENONE AND ETHINYL ESTRADIOL [Suspect]
     Indication: ACNE
  9. OXYCODONE HCL AND ACETAMINOPHEN [Concomitant]
     Indication: PAIN
     Dosage: UNK
     Route: 048
     Dates: start: 20060812
  10. YAZ [Suspect]
     Indication: PREMENSTRUAL SYNDROME
     Dosage: UNK
     Dates: start: 20060101, end: 20090101
  11. METOCLOPRAMIDE [Concomitant]
     Indication: NAUSEA
     Dosage: 10 UNK, UNK
     Route: 048
     Dates: start: 20061012
  12. ALBUTEROL SULFATE AUTOHALER [Concomitant]
     Indication: ASTHMA
     Dosage: UNK
     Dates: start: 20060203
  13. PERCOCET [Concomitant]
  14. IBUPROFEN [Concomitant]
     Indication: INFLAMMATION
     Dosage: 600 MG, UNK
     Route: 048
     Dates: start: 20030831, end: 20070208

REACTIONS (4)
  - NAUSEA [None]
  - CHOLECYSTITIS CHRONIC [None]
  - CHOLELITHIASIS [None]
  - ABDOMINAL PAIN UPPER [None]
